FAERS Safety Report 18248910 (Version 1)
Quarter: 2020Q3

REPORT INFORMATION
  Report Type: Spontaneous
  Country: US (occurrence: US)
  Receive Date: 20200909
  Receipt Date: 20200909
  Transmission Date: 20201103
  Serious: No
  Sender: FDA-Public Use
  Company Number: US-PERRIGO-20US011582

PATIENT
  Age: 56 Year
  Sex: Male

DRUGS (1)
  1. ALBUTEROL SULFATE. [Suspect]
     Active Substance: ALBUTEROL SULFATE
     Indication: HYPERSENSITIVITY
     Dosage: 90 TO 180 MCG, PRN
     Route: 055
     Dates: start: 2020

REACTIONS (1)
  - Choking [Not Recovered/Not Resolved]

NARRATIVE: CASE EVENT DATE: 20200630
